FAERS Safety Report 4635831-6 (Version None)
Quarter: 2005Q2

REPORT INFORMATION
  Report Type: 
  Country: None (occurrence: None)
  Receive Date: 20050413
  Receipt Date: 22250328
  Transmission Date: 20051028
  Serious: Yes (Other)
  Sender: FDA-Public Use
  Company Number: 430001M05CHE

PATIENT
  Age: 70 Year
  Sex: Female

DRUGS (5)
  1. NAVANTRONE (MITOXANTRONE HYDROCHLORIDE) [Suspect]
     Indication: BREAST CANCER
     Dates: start: 20040617, end: 20040909
  2. NAVELBINE [Suspect]
     Indication: BREAST CANCER
     Dosage: INTRAVENOUS
     Route: 042
     Dates: start: 20040415, end: 20040603
  3. XELODA [Suspect]
     Indication: BREAST CANCER
     Dosage: ORAL
     Route: 048
     Dates: start: 20040909
  4. ZOMETA [Suspect]
     Indication: BREAST CANCER
     Dates: start: 20030723, end: 20050113
  5. ANASTROZOLE [Concomitant]

REACTIONS (3)
  - JAW DISORDER [None]
  - OSTEONECROSIS [None]
  - TOOTH EXTRACTION [None]
